FAERS Safety Report 5319896-4 (Version None)
Quarter: 2007Q2

REPORT INFORMATION
  Report Type: 
  Country: None (occurrence: None)
  Receive Date: 20070503
  Receipt Date: 20070425
  Transmission Date: 20071010
  Serious: Yes (Other)
  Sender: FDA-Public Use
  Company Number: 2007-02052

PATIENT
  Age: 33 Year
  Sex: Male

DRUGS (3)
  1. LIDOCAINE HCL [Suspect]
     Indication: TOOTH EXTRACTION
     Dosage: 8 ML
  2. FENTANYL [Concomitant]
  3. MIDAZOLAM HCL [Concomitant]

REACTIONS (4)
  - OCULAR RETROBULBAR HAEMORRHAGE [None]
  - PROCEDURAL COMPLICATION [None]
  - SYNCOPE [None]
  - TONIC CONVULSION [None]
